FAERS Safety Report 6457682-2 (Version None)
Quarter: 2009Q4

REPORT INFORMATION
  Report Type: 
  Country: None (occurrence: None)
  Receive Date: 20091125
  Receipt Date: 20091113
  Transmission Date: 20100525
  Serious: Yes (Other)
  Sender: FDA-Public Use
  Company Number: US-WYE-H12153109

PATIENT
  Sex: Female

DRUGS (2)
  1. PRISTIQ [Suspect]
     Dates: start: 20091106, end: 20091112
  2. PRISTIQ [Suspect]
     Route: 048
     Dates: start: 20091113

REACTIONS (3)
  - AGGRESSION [None]
  - ANGER [None]
  - CRYING [None]
